FAERS Safety Report 11128903 (Version 1)
Quarter: 2015Q2

REPORT INFORMATION
  Report Type: Spontaneous
  Country: CH (occurrence: CH)
  Receive Date: 20150521
  Receipt Date: 20150521
  Transmission Date: 20150821
  Serious: Yes (Congenital Anomaly)
  Sender: FDA-Public Use
  Company Number: CH-SA-2015SA065547

PATIENT
  Age: 0 Day
  Sex: Male
  Weight: 2.5 kg

DRUGS (4)
  1. URBANYL [Suspect]
     Active Substance: CLOBAZAM
     Route: 064
  2. STILNOX [Suspect]
     Active Substance: ZOLPIDEM TARTRATE
     Route: 064
     Dates: start: 2014, end: 2014
  3. RISPERDAL [Suspect]
     Active Substance: RISPERIDONE
     Route: 064
  4. TEGRETOL [Suspect]
     Active Substance: CARBAMAZEPINE
     Route: 064

REACTIONS (3)
  - Hypospadias [Unknown]
  - Testicular retraction [Unknown]
  - Foetal exposure during pregnancy [Unknown]

NARRATIVE: CASE EVENT DATE: 201402
